FAERS Safety Report 14014219 (Version 2)
Quarter: 2017Q4

REPORT INFORMATION
  Report Type: Spontaneous
  Country: US (occurrence: US)
  Receive Date: 20170927
  Receipt Date: 20171015
  Transmission Date: 20180321
  Serious: Yes (Hospitalization)
  Sender: FDA-Public Use
  Company Number: US-BEH-2017083808

PATIENT
  Age: 55 Year
  Sex: Male

DRUGS (2)
  1. PRIVIGEN [Suspect]
     Active Substance: HUMAN IMMUNOGLOBULIN G
     Indication: MYASTHENIA GRAVIS
     Dosage: 20 G, DAILY FOR 5 DAYS EVERY 4-6 WEEKS
     Route: 042
     Dates: start: 20160627
  2. PRIVIGEN [Suspect]
     Active Substance: HUMAN IMMUNOGLOBULIN G
     Indication: MYASTHENIA GRAVIS

REACTIONS (2)
  - Dyspnoea [Unknown]
  - Dizziness [Unknown]

NARRATIVE: CASE EVENT DATE: 20170828
